FAERS Safety Report 7791839-3 (Version None)
Quarter: 2011Q4

REPORT INFORMATION
  Report Type: 
  Country: None (occurrence: None)
  Receive Date: 20111003
  Receipt Date: 20110920
  Transmission Date: 20120403
  Serious: Yes (Other)
  Sender: FDA-Public Use
  Company Number: US-BAYER-2011-022600

PATIENT
  Age: 16 Year
  Sex: Female
  Weight: 72.109 kg

DRUGS (13)
  1. WELLBUTRIN [Concomitant]
     Indication: POST-TRAUMATIC STRESS DISORDER
     Dosage: UNK UNK, QD
     Route: 048
     Dates: start: 20090622
  2. LYRICA [Concomitant]
     Dosage: 75 MG, UNK
     Route: 048
     Dates: start: 20090606
  3. TRAMADOL HCL [Concomitant]
     Indication: PAIN
     Dosage: 50 MG, UNK
     Route: 048
     Dates: start: 20090721, end: 20090801
  4. BUPROPION HYDROCHLORIDE [Concomitant]
     Indication: INFLAMMATION
  5. DAYPRO [Concomitant]
     Indication: PAIN
     Dosage: 600 MG, UNK
     Route: 048
     Dates: start: 20090606
  6. DEPROLENE AF 0.05% [Concomitant]
     Indication: RASH
     Dosage: UNK
     Route: 003
     Dates: start: 20090606
  7. BACTROBAN [Concomitant]
     Indication: CELLULITIS
  8. DROSPIRENONE AND ETHINYL ESTRADIOL [Suspect]
     Indication: OVARIAN CYST
     Dosage: UNK
     Dates: start: 20090803, end: 20090901
  9. DAYPRO [Concomitant]
     Indication: INFLAMMATION
     Dosage: 600 MG, UNK
     Route: 048
     Dates: start: 20090729, end: 20090801
  10. YAZ [Suspect]
     Indication: DYSMENORRHOEA
     Dosage: UNK
     Dates: start: 20081204, end: 20090701
  11. YAZ [Suspect]
     Indication: OVARIAN CYST
     Dosage: UNK
     Dates: start: 20090910, end: 20091001
  12. DROSPIRENONE AND ETHINYL ESTRADIOL [Suspect]
     Indication: DYSMENORRHOEA
  13. BUPROPION HYDROCHLORIDE [Concomitant]
     Indication: PAIN
     Dosage: 150 MG, QD
     Route: 048
     Dates: start: 20090628, end: 20090901

REACTIONS (9)
  - MALAISE [None]
  - INJURY [None]
  - ABDOMINAL PAIN [None]
  - NAUSEA [None]
  - FEAR OF EATING [None]
  - CHOLECYSTITIS CHRONIC [None]
  - VOMITING [None]
  - BILIARY DYSKINESIA [None]
  - PAIN [None]
